FAERS Safety Report 9195263 (Version 1)
Quarter: 2013Q1

REPORT INFORMATION
  Report Type: Spontaneous
  Country: US (occurrence: US)
  Receive Date: 20130328
  Receipt Date: 20130328
  Transmission Date: 20140127
  Serious: No
  Sender: FDA-Public Use
  Company Number: US-ALLERGAN-1301357US

PATIENT
  Age: 70 Year
  Sex: Female

DRUGS (3)
  1. LATISSE 0.03% [Suspect]
     Indication: GROWTH OF EYELASHES
     Dosage: 2 GTT, UNK
     Route: 061
     Dates: start: 20130122, end: 20130128
  2. PREMARIN                           /00073001/ [Concomitant]
     Indication: HORMONE REPLACEMENT THERAPY
     Dosage: UNK
  3. EYE DROPS NOS [Concomitant]
     Indication: DRY EYE
     Dosage: UNK

REACTIONS (10)
  - Eyelid disorder [Unknown]
  - Wrong technique in drug usage process [Unknown]
  - Eyelid exfoliation [Recovering/Resolving]
  - Wrong technique in drug usage process [Unknown]
  - Ocular icterus [Recovering/Resolving]
  - Eye pain [Unknown]
  - Erythema of eyelid [Recovering/Resolving]
  - Eyelid irritation [Unknown]
  - Madarosis [Unknown]
  - Wrong technique in drug usage process [Unknown]
